FAERS Safety Report 9325784 (Version 1)
Quarter: 2013Q2

REPORT INFORMATION
  Report Type: Spontaneous
  Country: GB (occurrence: GB)
  Receive Date: 20130604
  Receipt Date: 20130604
  Transmission Date: 20140414
  Serious: Yes (Other)
  Sender: FDA-Public Use
  Company Number: GB-ELI_LILLY_AND_COMPANY-GB201305007068

PATIENT
  Age: 23 Year
  Sex: Female
  Weight: 51.71 kg

DRUGS (1)
  1. DULOXETINE HYDROCHLORIDE [Suspect]
     Indication: DEPRESSION
     Dosage: 60 MG, UNKNOWN
     Route: 048

REACTIONS (3)
  - Loss of consciousness [Recovered/Resolved]
  - Alcohol intolerance [Recovered/Resolved]
  - Alcohol poisoning [Recovered/Resolved]
